FAERS Safety Report 24989455 (Version 7)
Quarter: 2025Q3

REPORT INFORMATION
  Report Type: Report from Study
  Country: US (occurrence: US)
  Receive Date: 20250220
  Receipt Date: 20250923
  Transmission Date: 20251021
  Serious: Yes (Hospitalization, Other)
  Sender: TAKEDA
  Company Number: US-TAKEDA-2025TUS018237

PATIENT
  Age: 58 Year
  Sex: Female

DRUGS (2)
  1. HUMAN IMMUNOGLOBULIN G [Suspect]
     Active Substance: HUMAN IMMUNOGLOBULIN G
     Indication: Primary immunodeficiency syndrome
  2. HUMAN IMMUNOGLOBULIN G [Suspect]
     Active Substance: HUMAN IMMUNOGLOBULIN G
     Indication: Hypogammaglobulinaemia

REACTIONS (10)
  - COVID-19 [Unknown]
  - Systemic lupus erythematosus [Unknown]
  - Diabetes mellitus [Unknown]
  - Gliosis [Unknown]
  - Fall [Unknown]
  - Meniscus injury [Unknown]
  - Arthritis [Unknown]
  - Bursitis [Unknown]
  - Cough [Unknown]
  - Malaise [Unknown]

NARRATIVE: CASE EVENT DATE: 20250219
